FAERS Safety Report 8487427-6 (Version None)
Quarter: 2012Q2

REPORT INFORMATION
  Report Type: 
  Country: None (occurrence: None)
  Receive Date: 20120628
  Receipt Date: 20120628
  Transmission Date: 20120825
  Serious: Yes (Disabling)
  Sender: FDA-Public Use
  Company Number: None

PATIENT
  Age: 50 Year
  Sex: Male

DRUGS (6)
  1. AVEENO POS SMOOTH SHAVE GEL [Suspect]
     Indication: THERAPEUTIC SKIN CARE TOPICAL
     Dosage: UNK, 1 OR 2XDAILY, TOPICAL
     Route: 061
  2. AVEENO SKIN FRELIEF BODYWASH [Suspect]
     Dosage: 12 FL OZ, TOPICAL
     Route: 061
  3. AVEENO MOISTURIZING BAR FOR DRY SKIN [Suspect]
     Dosage: TOPICAL, BODYWASH
     Route: 061
  4. AVEENO POS SMOOTH SHOWER SHAVE CREAM [Suspect]
     Indication: THERAPEUTIC SKIN CARE TOPICAL
     Dosage: UNK, TOPICAL
     Route: 061
  5. AVEENO SKIN RELIEF MOIST LTN MENTHL, 12OZ [Suspect]
     Dosage: TOPICAL
  6. AVEENO SKIN RELIEF BODYWASH FRAGFREE, 18OZ [Suspect]
     Dosage: 18OZ, TOPICAL, BODYWASH
     Route: 061

REACTIONS (2)
  - ANOSMIA [None]
  - AGEUSIA [None]
